FAERS Safety Report 24390481 (Version 1)
Quarter: 2024Q4

REPORT INFORMATION
  Report Type: Spontaneous
  Country: US (occurrence: US)
  Receive Date: 20241003
  Receipt Date: 20241003
  Transmission Date: 20250115
  Serious: Yes (Other)
  Sender: STRIDES
  Company Number: US-STRIDES ARCOLAB LIMITED-2024SP009439

PATIENT
  Age: 17 Year
  Sex: Female

DRUGS (14)
  1. PREDNISOLONE [Suspect]
     Active Substance: PREDNISOLONE
     Indication: Erythema multiforme
     Dosage: UNK
     Route: 048
  2. PREDNISOLONE [Suspect]
     Active Substance: PREDNISOLONE
     Indication: Allergy to metals
     Dosage: UNK, EVERY 2 WEEKS,  PREDNISONE TAPER
     Route: 048
  3. TRIAMCINOLONE ACETONIDE [Suspect]
     Active Substance: TRIAMCINOLONE ACETONIDE
     Indication: Erythema multiforme
     Dosage: UNK, 1% OINTMENT
     Route: 065
  4. TRIAMCINOLONE ACETONIDE [Suspect]
     Active Substance: TRIAMCINOLONE ACETONIDE
     Indication: Allergy to metals
     Dosage: 40 MILLIGRAM
     Route: 030
  5. METHOTREXATE [Suspect]
     Active Substance: METHOTREXATE
     Indication: Erythema multiforme
     Dosage: 10 MILLIGRAM, ONCE A WEEK, OINTMENT
     Route: 065
  6. METHOTREXATE [Suspect]
     Active Substance: METHOTREXATE
     Indication: Allergy to metals
  7. NYSTATIN [Suspect]
     Active Substance: NYSTATIN
     Indication: Erythema multiforme
     Dosage: UNK
     Route: 065
  8. NYSTATIN [Suspect]
     Active Substance: NYSTATIN
     Indication: Allergy to metals
  9. VALACYCLOVIR HYDROCHLORIDE [Suspect]
     Active Substance: VALACYCLOVIR HYDROCHLORIDE
     Indication: Erythema multiforme
     Dosage: 500 MILLIGRAM, QD
     Route: 048
  10. VALACYCLOVIR HYDROCHLORIDE [Suspect]
     Active Substance: VALACYCLOVIR HYDROCHLORIDE
     Indication: Allergy to metals
     Dosage: 1 GRAM, QD
     Route: 048
  11. FOLIC ACID [Concomitant]
     Active Substance: FOLIC ACID
     Indication: Erythema multiforme
     Dosage: UNK
     Route: 065
  12. FOLIC ACID [Concomitant]
     Active Substance: FOLIC ACID
     Indication: Allergy to metals
  13. FLUCONAZOLE [Concomitant]
     Active Substance: FLUCONAZOLE
     Indication: Erythema multiforme
     Dosage: UNK
     Route: 048
  14. FLUCONAZOLE [Concomitant]
     Active Substance: FLUCONAZOLE
     Indication: Allergy to metals

REACTIONS (3)
  - Drug ineffective [Unknown]
  - Treatment noncompliance [Unknown]
  - Off label use [Unknown]
